FAERS Safety Report 15965819 (Version 1)
Quarter: 2019Q1

REPORT INFORMATION
  Report Type: Spontaneous
  Country: US (occurrence: US)
  Receive Date: 20190215
  Receipt Date: 20190215
  Transmission Date: 20190418
  Serious: No
  Sender: FDA-Public Use
  Company Number: US-PFIZER INC-2019069099

PATIENT
  Age: 20 Year
  Sex: Male

DRUGS (1)
  1. GENOTROPIN MQ [Suspect]
     Active Substance: SOMATROPIN
     Indication: CRANIOPHARYNGIOMA
     Dosage: 0.4 MG, DAILY

REACTIONS (2)
  - Product use in unapproved indication [Unknown]
  - Blood sodium increased [Unknown]
